FAERS Safety Report 4786422-8 (Version None)
Quarter: 2005Q4

REPORT INFORMATION
  Report Type: 
  Country: None (occurrence: None)
  Receive Date: 20051003
  Receipt Date: 20050919
  Transmission Date: 20060501
  Serious: Yes (Hospitalization, Other)
  Sender: FDA-Public Use
  Company Number: US-MERCK-0509USA02569

PATIENT
  Age: 62 Year
  Sex: Female

DRUGS (3)
  1. VYTORIN [Suspect]
     Route: 048
     Dates: start: 20050501, end: 20050601
  2. ASPIRIN [Concomitant]
     Route: 048
  3. VITAMINS (UNSPECIFIED) [Concomitant]
     Route: 065

REACTIONS (5)
  - ACUTE PROMYELOCYTIC LEUKAEMIA [None]
  - ECCHYMOSIS [None]
  - MYALGIA [None]
  - NEUTROPENIA [None]
  - PANCYTOPENIA [None]
